FAERS Safety Report 22166519 (Version 8)
Quarter: 2023Q2

REPORT INFORMATION
  Report Type: Spontaneous
  Country: US (occurrence: US)
  Receive Date: 20230403
  Receipt Date: 20230623
  Transmission Date: 20230722
  Serious: Yes (Other)
  Sender: FDA-Public Use
  Company Number: US-PFIZER INC-202300135816

PATIENT
  Age: 68 Year
  Sex: Female
  Weight: 71.67 kg

DRUGS (5)
  1. IBRANCE [Suspect]
     Active Substance: PALBOCICLIB
     Indication: Breast cancer metastatic
     Dosage: 125 MG, 1X/DAY
     Dates: start: 20221120
  2. IBRANCE [Suspect]
     Active Substance: PALBOCICLIB
     Dosage: 125 MG
     Route: 048
     Dates: start: 20221121
  3. IBRANCE [Suspect]
     Active Substance: PALBOCICLIB
     Dosage: 100 MG, 1X/DAY
     Route: 048
     Dates: start: 20230510
  4. IBRANCE [Suspect]
     Active Substance: PALBOCICLIB
     Dosage: 100 MG, CYCLIC (THREE WEEKS ON AND 1 WEEK OFF)
  5. LETROZOLE [Concomitant]
     Active Substance: LETROZOLE
     Dosage: UNK, (2.5)
     Dates: start: 202210

REACTIONS (15)
  - Pneumonia fungal [Not Recovered/Not Resolved]
  - Acute respiratory distress syndrome [Not Recovered/Not Resolved]
  - Respiratory syncytial virus infection [Unknown]
  - Fungal infection [Not Recovered/Not Resolved]
  - Immune system disorder [Not Recovered/Not Resolved]
  - Illness [Not Recovered/Not Resolved]
  - Asthenia [Not Recovered/Not Resolved]
  - Sleep disorder [Unknown]
  - Madarosis [Unknown]
  - Facial wasting [Unknown]
  - Alopecia [Unknown]
  - Amnesia [Unknown]
  - Infection [Unknown]
  - Neoplasm progression [Unknown]
  - Arthropathy [Unknown]

NARRATIVE: CASE EVENT DATE: 20221101
